FAERS Safety Report 21269783 (Version 3)
Quarter: 2023Q1

REPORT INFORMATION
  Report Type: Spontaneous
  Country: US (occurrence: US)
  Receive Date: 20220830
  Receipt Date: 20230320
  Transmission Date: 20230418
  Serious: No
  Sender: FDA-Public Use
  Company Number: US-BRISTOL-MYERS SQUIBB COMPANY-2022-098075

PATIENT
  Age: 76 Year
  Sex: Female

DRUGS (1)
  1. REVLIMID [Suspect]
     Active Substance: LENALIDOMIDE
     Indication: Osteoporosis
     Dosage: 1 CAPSULE (5 MILLIGRAM) DAILY FOR 21 DAYS ON AND 7 DAYS OFF
     Route: 048

REACTIONS (5)
  - Diarrhoea [Unknown]
  - Intentional product use issue [Unknown]
  - Urinary tract infection [Unknown]
  - Accidental overdose [Unknown]
  - Off label use [Unknown]
